FAERS Safety Report 19129764 (Version 4)
Quarter: 2021Q3

REPORT INFORMATION
  Report Type: Report from Study
  Country: CA (occurrence: CA)
  Receive Date: 20210413
  Receipt Date: 20210803
  Transmission Date: 20211014
  Serious: Yes (Other)
  Sender: FDA-Public Use
  Company Number: NVSC2021CA080724

PATIENT
  Sex: Male

DRUGS (10)
  1. ELAVIL [Concomitant]
     Active Substance: AMITRIPTYLINE HYDROCHLORIDE
     Indication: PRODUCT USED FOR UNKNOWN INDICATION
     Dosage: 1 DF, QD (1/2 HOUR BEFORE BED)
     Route: 065
     Dates: start: 20210705
  2. DOCUSATE SODIUM. [Concomitant]
     Active Substance: DOCUSATE SODIUM
     Indication: CONSTIPATION
     Dosage: 1 DF, QD (AT BEDTIME IF CONSTIPATED)
     Route: 065
     Dates: start: 20210217
  3. AMANTADINE. [Concomitant]
     Active Substance: AMANTADINE HYDROCHLORIDE
     Indication: PRODUCT USED FOR UNKNOWN INDICATION
     Dosage: 1 DF, BID (100MD), MORNING AND AFTERNOON
     Route: 065
     Dates: start: 20210705
  4. PREVNAR 13 [Concomitant]
     Active Substance: PNEUMOCOCCAL 13-VALENT CONJUGATE VACCINE
     Indication: PRODUCT USED FOR UNKNOWN INDICATION
     Dosage: 1 DF (ONE INJECTION OF 0.5 ML EACH DOSE AT SAME TIME AS ENGERIX DOSE)
     Route: 065
  5. AMLODIPINE [Suspect]
     Active Substance: AMLODIPINE BESYLATE
     Indication: HYPERTENSION
     Dosage: 1 DF, QD (1 TABLET ONCE PER DAY)
     Route: 048
     Dates: start: 20210623
  6. AMLODIPINE [Suspect]
     Active Substance: AMLODIPINE BESYLATE
     Indication: SECONDARY PROGRESSIVE MULTIPLE SCLEROSIS
  7. PANTOPRAZOLE [Suspect]
     Active Substance: PANTOPRAZOLE
     Indication: SECONDARY PROGRESSIVE MULTIPLE SCLEROSIS
     Dosage: 40 MG, QD (30 MINUTES BEFORE BREAKFAST)
     Route: 065
     Dates: start: 20210705
  8. ENGERIX?B [Concomitant]
     Active Substance: HEPATITIS B VIRUS SUBTYPE ADW2 HBSAG SURFACE PROTEIN ANTIGEN
     Indication: PRODUCT USED FOR UNKNOWN INDICATION
     Dosage: 1 DF (20MCG/ML) 4 WEEKS AND 6 MONTHS
     Route: 065
  9. SILDENAFIL. [Concomitant]
     Active Substance: SILDENAFIL
     Dosage: 0.5 DF (1/2 OF 1 TABLET 1 HOUR BEFORE RELATIONS (MAXIMUN 1 PER DAY))
     Route: 065
     Dates: start: 20201010
  10. TECFIDERA [Concomitant]
     Active Substance: DIMETHYL FUMARATE
     Indication: PRODUCT USED FOR UNKNOWN INDICATION
     Dosage: 2 DF, BID (AT BREAKFAST AND DINNER)
     Route: 065
     Dates: start: 20210707

REACTIONS (4)
  - Expanded disability status scale score increased [Unknown]
  - Concomitant disease progression [Unknown]
  - Multiple sclerosis [Unknown]
  - Product use in unapproved indication [Unknown]
